FAERS Safety Report 21835587 (Version 12)
Quarter: 2025Q2

REPORT INFORMATION
  Report Type: Spontaneous
  Country: CA (occurrence: CA)
  Receive Date: 20230109
  Receipt Date: 20250417
  Transmission Date: 20250717
  Serious: Yes (Hospitalization)
  Sender: ROCHE
  Company Number: CA-ROCHE-3256192

PATIENT
  Age: 53 Year
  Sex: Female

DRUGS (102)
  1. DIMETHYL SULFONE [Suspect]
     Active Substance: DIMETHYL SULFONE
     Indication: Product used for unknown indication
     Route: 065
  2. FISH OIL [Suspect]
     Active Substance: FISH OIL
     Indication: Product used for unknown indication
     Route: 048
  3. FISH OIL [Suspect]
     Active Substance: FISH OIL
     Route: 048
  4. FISH OIL [Suspect]
     Active Substance: FISH OIL
     Route: 048
  5. FISH OIL [Suspect]
     Active Substance: FISH OIL
     Route: 048
  6. ALCOHOL [Suspect]
     Active Substance: ALCOHOL
     Indication: Product used for unknown indication
     Route: 065
  7. SOMATROPIN [Interacting]
     Active Substance: SOMATROPIN
     Indication: Product used for unknown indication
     Route: 062
  8. SOMATROPIN [Interacting]
     Active Substance: SOMATROPIN
     Route: 065
  9. SOMATROPIN [Interacting]
     Active Substance: SOMATROPIN
     Route: 062
  10. SOMATROPIN [Interacting]
     Active Substance: SOMATROPIN
     Route: 065
  11. DOCONEXENT\ICOSAPENT\OMEGA-3 FATTY ACIDS [Interacting]
     Active Substance: DOCONEXENT\ICOSAPENT\OMEGA-3 FATTY ACIDS
     Indication: Product used for unknown indication
     Route: 048
  12. DOCONEXENT\ICOSAPENT\OMEGA-3 FATTY ACIDS [Interacting]
     Active Substance: DOCONEXENT\ICOSAPENT\OMEGA-3 FATTY ACIDS
     Route: 048
  13. DOCONEXENT\ICOSAPENT\OMEGA-3 FATTY ACIDS [Interacting]
     Active Substance: DOCONEXENT\ICOSAPENT\OMEGA-3 FATTY ACIDS
     Route: 065
  14. OMEGA-3 FATTY ACIDS [Interacting]
     Active Substance: OMEGA-3 FATTY ACIDS
     Indication: Product used for unknown indication
     Route: 048
  15. OMEGA-3 FATTY ACIDS [Interacting]
     Active Substance: OMEGA-3 FATTY ACIDS
     Route: 048
  16. OMEGA-3 FATTY ACIDS [Interacting]
     Active Substance: OMEGA-3 FATTY ACIDS
     Route: 048
  17. OMEGA-3 FATTY ACIDS [Interacting]
     Active Substance: OMEGA-3 FATTY ACIDS
     Route: 048
  18. LORAZEPAM [Interacting]
     Active Substance: LORAZEPAM
     Indication: Product used for unknown indication
     Dosage: FORM OF ADMIN NOT SPECIFIED
     Route: 065
  19. LORAZEPAM [Interacting]
     Active Substance: LORAZEPAM
     Dosage: FORM OF ADMIN NOT SPECIFIED
     Route: 048
  20. ESTRADIOL [Interacting]
     Active Substance: ESTRADIOL
     Indication: Product used for unknown indication
     Route: 048
  21. ESTRADIOL [Interacting]
     Active Substance: ESTRADIOL
     Route: 065
  22. ESTRADIOL [Interacting]
     Active Substance: ESTRADIOL
     Route: 062
  23. ESTRADIOL [Interacting]
     Active Substance: ESTRADIOL
     Route: 062
  24. ESTRADIOL [Interacting]
     Active Substance: ESTRADIOL
     Route: 062
  25. BUDESONIDE\FORMOTEROL FUMARATE [Interacting]
     Active Substance: BUDESONIDE\FORMOTEROL FUMARATE
     Indication: Product used for unknown indication
     Route: 048
  26. BUDESONIDE\FORMOTEROL FUMARATE [Interacting]
     Active Substance: BUDESONIDE\FORMOTEROL FUMARATE
     Route: 048
  27. BUDESONIDE\FORMOTEROL FUMARATE [Interacting]
     Active Substance: BUDESONIDE\FORMOTEROL FUMARATE
     Route: 048
  28. BUDESONIDE\FORMOTEROL FUMARATE [Interacting]
     Active Substance: BUDESONIDE\FORMOTEROL FUMARATE
     Route: 048
  29. BUDESONIDE\FORMOTEROL FUMARATE [Interacting]
     Active Substance: BUDESONIDE\FORMOTEROL FUMARATE
     Route: 048
  30. BUDESONIDE\FORMOTEROL FUMARATE [Interacting]
     Active Substance: BUDESONIDE\FORMOTEROL FUMARATE
     Route: 048
  31. BUDESONIDE\FORMOTEROL FUMARATE [Interacting]
     Active Substance: BUDESONIDE\FORMOTEROL FUMARATE
     Route: 065
  32. BUDESONIDE\FORMOTEROL FUMARATE [Interacting]
     Active Substance: BUDESONIDE\FORMOTEROL FUMARATE
     Route: 065
  33. DIMETHYL SULFONE [Interacting]
     Active Substance: DIMETHYL SULFONE
     Indication: Product used for unknown indication
     Route: 065
  34. DIMETHYL SULFONE [Interacting]
     Active Substance: DIMETHYL SULFONE
     Route: 065
  35. DIMETHYL SULFONE [Interacting]
     Active Substance: DIMETHYL SULFONE
     Route: 065
  36. DIMETHYL SULFONE [Interacting]
     Active Substance: DIMETHYL SULFONE
     Route: 065
  37. DIMETHYL SULFONE [Interacting]
     Active Substance: DIMETHYL SULFONE
     Route: 065
  38. PROGESTERONE [Interacting]
     Active Substance: PROGESTERONE
     Indication: Product used for unknown indication
     Route: 048
  39. PROGESTERONE [Interacting]
     Active Substance: PROGESTERONE
     Route: 048
  40. PROGESTERONE [Interacting]
     Active Substance: PROGESTERONE
     Route: 048
  41. PROGESTERONE [Interacting]
     Active Substance: PROGESTERONE
     Route: 048
  42. PROGESTERONE [Interacting]
     Active Substance: PROGESTERONE
     Route: 030
  43. PROGESTERONE [Interacting]
     Active Substance: PROGESTERONE
     Route: 048
  44. PROGESTERONE [Interacting]
     Active Substance: PROGESTERONE
     Route: 048
  45. VARENICLINE [Interacting]
     Active Substance: VARENICLINE
     Indication: Product used for unknown indication
     Route: 065
  46. VARENICLINE [Interacting]
     Active Substance: VARENICLINE
     Route: 065
  47. ARBONNE NUTRIMIN C RE9 REALITY SPF 8 DAY CREME [Interacting]
     Active Substance: OCTINOXATE\OXYBENZONE
     Indication: Product used for unknown indication
     Route: 048
  48. VENLAFAXINE [Interacting]
     Active Substance: VENLAFAXINE HYDROCHLORIDE
     Indication: Product used for unknown indication
     Route: 065
  49. BIFIDOBACTERIUM LONGUM [Interacting]
     Active Substance: BIFIDOBACTERIUM LONGUM
     Indication: Product used for unknown indication
     Route: 048
  50. BIFIDOBACTERIUM LONGUM [Interacting]
     Active Substance: BIFIDOBACTERIUM LONGUM
     Route: 065
  51. BIFIDOBACTERIUM LONGUM [Interacting]
     Active Substance: BIFIDOBACTERIUM LONGUM
     Route: 048
  52. BIFIDOBACTERIUM LONGUM [Interacting]
     Active Substance: BIFIDOBACTERIUM LONGUM
     Route: 065
  53. DOCONEXENT [Interacting]
     Active Substance: DOCONEXENT
     Indication: Product used for unknown indication
     Route: 048
  54. DOCONEXENT [Interacting]
     Active Substance: DOCONEXENT
     Route: 048
  55. DOCONEXENT [Interacting]
     Active Substance: DOCONEXENT
     Route: 065
  56. ICOSAPENT [Interacting]
     Active Substance: ICOSAPENT
     Indication: Product used for unknown indication
     Route: 048
  57. ICOSAPENT [Interacting]
     Active Substance: ICOSAPENT
     Route: 048
  58. LACTOBACILLUS ACIDOPHILUS [Interacting]
     Active Substance: LACTOBACILLUS ACIDOPHILUS
     Indication: Product used for unknown indication
     Route: 067
  59. LACTOBACILLUS ACIDOPHILUS [Interacting]
     Active Substance: LACTOBACILLUS ACIDOPHILUS
     Route: 048
  60. LACTOBACILLUS ACIDOPHILUS [Interacting]
     Active Substance: LACTOBACILLUS ACIDOPHILUS
     Route: 048
  61. LACTOBACILLUS ACIDOPHILUS [Interacting]
     Active Substance: LACTOBACILLUS ACIDOPHILUS
     Route: 048
  62. LACTOBACILLUS ACIDOPHILUS [Interacting]
     Active Substance: LACTOBACILLUS ACIDOPHILUS
     Route: 048
  63. LACTOBACILLUS ACIDOPHILUS [Interacting]
     Active Substance: LACTOBACILLUS ACIDOPHILUS
     Route: 048
  64. LACTOBACILLUS ACIDOPHILUS [Interacting]
     Active Substance: LACTOBACILLUS ACIDOPHILUS
     Route: 048
  65. LACTOBACILLUS CASEI [Interacting]
     Active Substance: LACTOBACILLUS CASEI
     Indication: Product used for unknown indication
     Route: 065
  66. LACTOBACILLUS CASEI [Interacting]
     Active Substance: LACTOBACILLUS CASEI
     Route: 048
  67. LACTOBACILLUS RHAMNOSUS [Interacting]
     Active Substance: LACTOBACILLUS RHAMNOSUS
     Indication: Product used for unknown indication
     Dosage: 1 DOSAGE
     Route: 065
  68. LACTOBACILLUS RHAMNOSUS [Interacting]
     Active Substance: LACTOBACILLUS RHAMNOSUS
     Dosage: 1 DOSAGE
     Route: 048
  69. LINOLEIC ACID [Interacting]
     Active Substance: LINOLEIC ACID
     Indication: Product used for unknown indication
     Route: 048
  70. LINOLEIC ACID [Interacting]
     Active Substance: LINOLEIC ACID
     Route: 048
  71. LINOLEIC ACID [Interacting]
     Active Substance: LINOLEIC ACID
     Route: 048
  72. LINOLEIC ACID [Interacting]
     Active Substance: LINOLEIC ACID
     Route: 048
  73. THIOCTIC ACID [Interacting]
     Active Substance: THIOCTIC ACID
     Indication: Product used for unknown indication
     Route: 065
  74. THIOCTIC ACID [Interacting]
     Active Substance: THIOCTIC ACID
     Route: 065
  75. UBIDECARENONE [Interacting]
     Active Substance: UBIDECARENONE
     Indication: Product used for unknown indication
     Route: 065
  76. UBIDECARENONE [Interacting]
     Active Substance: UBIDECARENONE
     Route: 048
  77. UBIDECARENONE [Interacting]
     Active Substance: UBIDECARENONE
     Route: 048
  78. UBIDECARENONE [Interacting]
     Active Substance: UBIDECARENONE
     Route: 048
  79. VITAMIN A [Interacting]
     Active Substance: VITAMIN A
     Indication: Product used for unknown indication
     Route: 048
  80. VITAMIN A [Interacting]
     Active Substance: VITAMIN A
     Route: 048
  81. VITAMIN A [Interacting]
     Active Substance: VITAMIN A
     Route: 048
  82. VITAMIN A [Interacting]
     Active Substance: VITAMIN A
     Route: 048
  83. VITAMIN C [Interacting]
     Active Substance: ASCORBIC ACID
     Indication: Product used for unknown indication
     Route: 048
  84. VITAMIN C [Interacting]
     Active Substance: ASCORBIC ACID
     Route: 048
  85. VITAMIN C [Interacting]
     Active Substance: ASCORBIC ACID
     Route: 048
  86. VITAMIN C [Interacting]
     Active Substance: ASCORBIC ACID
     Route: 048
  87. ERGOCALCIFEROL [Interacting]
     Active Substance: ERGOCALCIFEROL
     Indication: Product used for unknown indication
     Route: 048
  88. ERGOCALCIFEROL [Interacting]
     Active Substance: ERGOCALCIFEROL
     Route: 048
  89. ERGOCALCIFEROL [Interacting]
     Active Substance: ERGOCALCIFEROL
     Route: 048
  90. .ALPHA.-TOCOPHEROL, D- [Interacting]
     Active Substance: .ALPHA.-TOCOPHEROL, D-
     Indication: Product used for unknown indication
     Route: 048
  91. LINOLEIC ACID, CONJUGATED [Interacting]
     Active Substance: LINOLEIC ACID, CONJUGATED
     Indication: Product used for unknown indication
     Route: 048
  92. LINOLEIC ACID, CONJUGATED [Interacting]
     Active Substance: LINOLEIC ACID, CONJUGATED
     Route: 048
  93. VARENICLINE TARTRATE [Interacting]
     Active Substance: VARENICLINE TARTRATE
     Indication: Product used for unknown indication
     Route: 065
  94. VARENICLINE TARTRATE [Interacting]
     Active Substance: VARENICLINE TARTRATE
     Route: 065
  95. VARENICLINE TARTRATE [Interacting]
     Active Substance: VARENICLINE TARTRATE
     Route: 065
  96. VENLAFAXINE HYDROCHLORIDE [Interacting]
     Active Substance: VENLAFAXINE HYDROCHLORIDE
     Indication: Product used for unknown indication
     Route: 065
  97. VITAMIN D [Interacting]
     Active Substance: VITAMIN D NOS
     Indication: Product used for unknown indication
     Route: 065
  98. VITAMIN D [Interacting]
     Active Substance: VITAMIN D NOS
     Route: 048
  99. VITAMIN E [Interacting]
     Active Substance: .ALPHA.-TOCOPHEROL
     Indication: Product used for unknown indication
     Route: 048
  100. VITAMIN E [Interacting]
     Active Substance: .ALPHA.-TOCOPHEROL
     Route: 048
  101. OMEGA-3 ACIDS [Interacting]
     Active Substance: OMEGA-3 FATTY ACIDS
     Indication: Product used for unknown indication
     Route: 048
  102. OMEGA-3 ACIDS [Interacting]
     Active Substance: OMEGA-3 FATTY ACIDS
     Route: 065

REACTIONS (6)
  - Drug-induced liver injury [Recovering/Resolving]
  - Hepatic cirrhosis [Recovering/Resolving]
  - Hepatic encephalopathy [Recovering/Resolving]
  - Hepatic necrosis [Recovering/Resolving]
  - Hepatotoxicity [Recovering/Resolving]
  - Drug interaction [Unknown]
